FAERS Safety Report 9744282 (Version 1)
Quarter: 2013Q4

REPORT INFORMATION
  Report Type: Report from Study
  Country: DE (occurrence: DE)
  Receive Date: 20131210
  Receipt Date: 20131210
  Transmission Date: 20140711
  Serious: Yes (Hospitalization, Other)
  Sender: FDA-Public Use
  Company Number: DE-ABBVIE-13P-062-1175932-00

PATIENT
  Sex: Female

DRUGS (1)
  1. HUMIRA [Suspect]
     Indication: RHEUMATOID ARTHRITIS
     Route: 058
     Dates: start: 20080115

REACTIONS (4)
  - Wound [Not Recovered/Not Resolved]
  - Leg amputation [Unknown]
  - Anaemia [Not Recovered/Not Resolved]
  - Bursitis [Not Recovered/Not Resolved]
